FAERS Safety Report 7949512-4 (Version None)
Quarter: 2011Q4

REPORT INFORMATION
  Report Type: 
  Country: None (occurrence: None)
  Receive Date: 20111123
  Receipt Date: 20111111
  Transmission Date: 20120403
  Serious: Yes (Hospitalization)
  Sender: FDA-Public Use
  Company Number: 2011SP050115

PATIENT
  Age: 55 Year
  Sex: Male
  Weight: 94.8018 kg

DRUGS (17)
  1. FLEXERIL [Concomitant]
  2. FLOVENT [Concomitant]
  3. THERAGRAN-M [Concomitant]
  4. PEG-INTRON [Suspect]
     Indication: PROPHYLAXIS
     Dosage: SC
     Route: 058
     Dates: start: 20110901
  5. PEG-INTRON [Suspect]
     Indication: HEPATITIS C
     Dosage: SC
     Route: 058
     Dates: start: 20110901
  6. AMBROXOL [Concomitant]
  7. RIBAVIRIN [Suspect]
     Indication: HEPATITIS C
     Dosage: 200 MG;PO
     Route: 048
     Dates: start: 20110901
  8. RIBAVIRIN [Suspect]
     Indication: PROPHYLAXIS
     Dosage: 200 MG;PO
     Route: 048
     Dates: start: 20110901
  9. HYDRODIURIL [Concomitant]
  10. ANGIOTENSIN-CONVERTING ENZYME INHIBITORS [Concomitant]
  11. DESYREL [Suspect]
  12. LISINOPRIL [Suspect]
  13. LOPRESSOR [Concomitant]
  14. ALBUTEROL [Concomitant]
  15. VICTRELIS [Suspect]
     Indication: PROPHYLAXIS
     Dosage: 200 MG;TID;PO
     Route: 048
     Dates: start: 20111010
  16. VICTRELIS [Suspect]
     Indication: HEPATITIS C
     Dosage: 200 MG;TID;PO
     Route: 048
     Dates: start: 20111010
  17. MEDROL [Concomitant]

REACTIONS (11)
  - ABDOMINAL DISCOMFORT [None]
  - ORAL PAIN [None]
  - LYMPHADENOPATHY [None]
  - WHEEZING [None]
  - OBSTRUCTIVE AIRWAYS DISORDER [None]
  - DIARRHOEA [None]
  - OFF LABEL USE [None]
  - THERAPY CESSATION [None]
  - SWOLLEN TONGUE [None]
  - ANGIOEDEMA [None]
  - APHASIA [None]
